FAERS Safety Report 9356648 (Version 2)
Quarter: 2013Q2

REPORT INFORMATION
  Report Type: Spontaneous
  Country: US (occurrence: US)
  Receive Date: 20130619
  Receipt Date: 20130628
  Transmission Date: 20140414
  Serious: No
  Sender: FDA-Public Use
  Company Number: US-TEVA-413126USA

PATIENT
  Age: 24 Year
  Sex: Female
  Weight: 54.48 kg

DRUGS (4)
  1. PLAN B ONE-STEP [Suspect]
     Indication: POST COITAL CONTRACEPTION
     Dosage: 1.5 MILLIGRAM DAILY;
     Route: 048
     Dates: start: 20130608, end: 20130608
  2. PLAN B ONE-STEP [Suspect]
     Dosage: 1.5 MILLIGRAM DAILY;
     Route: 048
     Dates: start: 20130610, end: 20130610
  3. BIRTH CONTROL [Concomitant]
     Indication: CONTRACEPTION
  4. AMPICILLIN [Concomitant]
     Indication: ACNE

REACTIONS (1)
  - Menstruation irregular [Recovered/Resolved]
